FAERS Safety Report 7910136-6 (Version None)
Quarter: 2011Q4

REPORT INFORMATION
  Report Type: 
  Country: None (occurrence: None)
  Receive Date: 20111111
  Receipt Date: 20111103
  Transmission Date: 20120403
  Serious: Yes (Death, Hospitalization)
  Sender: FDA-Public Use
  Company Number: PHHY2011JP97022

PATIENT
  Age: 35 Year
  Sex: Female

DRUGS (7)
  1. NAFAMOSTAT MESILATE [Concomitant]
     Route: 042
  2. MORPHINE [Concomitant]
  3. ALLOPURINOL [Suspect]
     Dosage: 300 MG, UNK
     Route: 048
  4. ANESTHETICS, GENERAL [Concomitant]
  5. CYCLOPHOSPHAMIDE [Concomitant]
  6. VINCRISTINE [Concomitant]
  7. DOXORUBICIN HCL [Concomitant]

REACTIONS (11)
  - DISSEMINATED INTRAVASCULAR COAGULATION [None]
  - BLOOD LACTATE DEHYDROGENASE INCREASED [None]
  - BONE PAIN [None]
  - CARDIAC ARREST [None]
  - TUMOUR LYSIS SYNDROME [None]
  - MATERNAL EXPOSURE DURING PREGNANCY [None]
  - HYPERKALAEMIA [None]
  - RESPIRATORY FAILURE [None]
  - PULMONARY HAEMORRHAGE [None]
  - PREMATURE LABOUR [None]
  - LACTIC ACIDOSIS [None]
